FAERS Safety Report 5567284-8 (Version None)
Quarter: 2007Q4

REPORT INFORMATION
  Report Type: 
  Country: None (occurrence: None)
  Receive Date: 20071219
  Receipt Date: 20070110
  Transmission Date: 20080405
  Serious: Yes (Death)
  Sender: FDA-Public Use
  Company Number: US-ABBOTT-07P-163-0355700-00

PATIENT
  Sex: Female

DRUGS (4)
  1. DILAUDID [Suspect]
     Indication: DRUG USE FOR UNKNOWN INDICATION
  2. FENTANYL CITRATE [Suspect]
     Indication: PAIN
     Route: 048
  3. FENTANYL CITRATE [Suspect]
     Indication: SURGERY
  4. FENTANYL TRANSDERMAL SYSTEM [Suspect]
     Indication: DRUG USE FOR UNKNOWN INDICATION

REACTIONS (1)
  - OVERDOSE [None]
